FAERS Safety Report 9423475 (Version 1)
Quarter: 2013Q3

REPORT INFORMATION
  Report Type: Spontaneous
  Country: US (occurrence: US)
  Receive Date: 20130726
  Receipt Date: 20130726
  Transmission Date: 20140515
  Serious: Yes (Other)
  Sender: FDA-Public Use
  Company Number: US-ABBOTT-13P-163-1121436-00

PATIENT
  Sex: Female

DRUGS (3)
  1. SYNTHROID [Suspect]
     Indication: PRODUCT USED FOR UNKNOWN INDICATION
  2. LEVOXYL [Suspect]
     Indication: PRODUCT USED FOR UNKNOWN INDICATION
  3. LEVOXYL [Suspect]
     Indication: PRODUCT USED FOR UNKNOWN INDICATION

REACTIONS (6)
  - Breast operation [Unknown]
  - Nausea [Unknown]
  - Malaise [Unknown]
  - Dizziness [Unknown]
  - Eructation [Unknown]
  - Drug hypersensitivity [Unknown]
